FAERS Safety Report 14959892 (Version 3)
Quarter: 2018Q3

REPORT INFORMATION
  Report Type: Report from Study
  Country: US (occurrence: US)
  Receive Date: 20180531
  Receipt Date: 20180723
  Transmission Date: 20181010
  Serious: Yes (Hospitalization, Disabling)
  Sender: FDA-Public Use
  Company Number: US-ACTELION-A-US2018-170410

PATIENT
  Age: 41 Year
  Sex: Female

DRUGS (5)
  1. UPTRAVI [Suspect]
     Active Substance: SELEXIPAG
     Dosage: 600 MCG, BID
     Route: 048
     Dates: start: 20180413
  2. UPTRAVI [Suspect]
     Active Substance: SELEXIPAG
     Dosage: 400 MCG, BID
     Route: 048
     Dates: start: 20180316
  3. OPSUMIT [Suspect]
     Active Substance: MACITENTAN
     Indication: PULMONARY ARTERIAL HYPERTENSION
     Dosage: 10 MG, QD
     Route: 048
     Dates: start: 20180103
  4. UPTRAVI [Suspect]
     Active Substance: SELEXIPAG
     Indication: PULMONARY ARTERIAL HYPERTENSION
     Dosage: 200 MCG, BID
     Route: 048
     Dates: start: 20180316, end: 20180511
  5. SILDENAFIL. [Concomitant]
     Active Substance: SILDENAFIL
     Dosage: 20 MG, TID
     Dates: start: 201710

REACTIONS (14)
  - Gastric disorder [Unknown]
  - Nausea [Recovered/Resolved]
  - Headache [Unknown]
  - Gastric antral vascular ectasia [Unknown]
  - Abdominal pain [Unknown]
  - Fatigue [Unknown]
  - Muscle spasms [Unknown]
  - Vomiting [Recovering/Resolving]
  - Portal hypertensive gastropathy [Unknown]
  - Diarrhoea [Recovered/Resolved]
  - Muscle fatigue [Unknown]
  - Haemoglobin decreased [Unknown]
  - Melaena [Recovered/Resolved]
  - Transfusion [Unknown]

NARRATIVE: CASE EVENT DATE: 20180413
